FAERS Safety Report 5267822-9 (Version None)
Quarter: 2007Q1

REPORT INFORMATION
  Report Type: 
  Country: None (occurrence: None)
  Receive Date: 20070316
  Receipt Date: 20070308
  Transmission Date: 20070707
  Serious: Yes (Other)
  Sender: FDA-Public Use
  Company Number: US-PFIZER INC-2007018366

PATIENT

DRUGS (3)
  1. CELEBREX [Suspect]
     Route: 048
     Dates: start: 20030403, end: 20031219
  2. BEXTRA [Suspect]
     Route: 048
  3. VIOXX [Suspect]
     Route: 048

REACTIONS (1)
  - CEREBROVASCULAR ACCIDENT [None]
